FAERS Safety Report 20926459 (Version 1)
Quarter: 2022Q2

REPORT INFORMATION
  Report Type: Spontaneous
  Country: US (occurrence: US)
  Receive Date: 20220607
  Receipt Date: 20220607
  Transmission Date: 20220721
  Serious: Yes (Death, Other)
  Sender: FDA-Public Use
  Company Number: US-BRISTOL-MYERS SQUIBB COMPANY-2022-052520

PATIENT
  Age: 56 Year
  Sex: Male

DRUGS (2)
  1. OPDIVO [Suspect]
     Active Substance: NIVOLUMAB
     Indication: Prostate cancer
     Dosage: DOSE : OPDIVO: 220MG. YERVOY: 75MG;     FREQ : EVERY 3 WEEKS.?100MG AND 120MG VIALS
  2. YERVOY [Suspect]
     Active Substance: IPILIMUMAB
     Indication: Prostate cancer
     Dosage: 50MG VIALS

REACTIONS (2)
  - Death [Fatal]
  - Off label use [Unknown]
